FAERS Safety Report 24873684 (Version 1)
Quarter: 2025Q1

REPORT INFORMATION
  Report Type: Spontaneous
  Country: US (occurrence: None)
  Receive Date: 20250121
  Receipt Date: 20250121
  Transmission Date: 20250408
  Serious: Yes (Other)
  Sender: FDA-CTU
  Company Number: None

PATIENT
  Sex: Male

DRUGS (1)
  1. ACYCLOVIR [Suspect]
     Active Substance: ACYCLOVIR
     Dates: start: 20230214, end: 20230926

REACTIONS (5)
  - Seizure [None]
  - Decreased appetite [None]
  - Insomnia [None]
  - Asthenia [None]
  - Suicidal behaviour [None]
